FAERS Safety Report 6588048-2 (Version None)
Quarter: 2010Q1

REPORT INFORMATION
  Report Type: 
  Country: None (occurrence: None)
  Receive Date: 20100217
  Receipt Date: 20100217
  Transmission Date: 20100710
  Serious: Yes (Life-Threatening)
  Sender: FDA-Public Use
  Company Number: None

PATIENT
  Sex: Female
  Weight: 50.8029 kg

DRUGS (1)
  1. ALENDRONATE SODIUM [Suspect]
     Indication: OSTEOPENIA
     Dosage: 1 TABLET WEEKLY

REACTIONS (7)
  - APHONIA [None]
  - ASPIRATION [None]
  - CHOKING [None]
  - DYSPHAGIA [None]
  - FOREIGN BODY [None]
  - OROPHARYNGEAL PAIN [None]
  - PRODUCT SOLUBILITY ABNORMAL [None]
